FAERS Safety Report 21065625 (Version 2)
Quarter: 2022Q3

REPORT INFORMATION
  Report Type: Spontaneous
  Country: US (occurrence: US)
  Receive Date: 20220711
  Receipt Date: 20220727
  Transmission Date: 20221026
  Serious: No
  Sender: FDA-Public Use
  Company Number: US-NOVARTISTESTPH-NVSC2022US156749

PATIENT
  Sex: Male

DRUGS (1)
  1. ZOLGENSMA [Suspect]
     Active Substance: ONASEMNOGENE ABEPARVOVEC-XIOI
     Indication: Spinal muscular atrophy
     Dosage: ONCE/SINGLE, (1.1 ? 1014 VECTOR GENOMES (VG) PER KG OF BODY WEIGHT)
     Route: 042
     Dates: start: 20220629

REACTIONS (2)
  - Faeces discoloured [Unknown]
  - Vomiting [Unknown]
